FAERS Safety Report 5771723-7 (Version None)
Quarter: 2008Q2

REPORT INFORMATION
  Report Type: 
  Country: None (occurrence: None)
  Receive Date: 20080601
  Receipt Date: 20080225
  Transmission Date: 20081010
  Serious: No
  Sender: FDA-Public Use
  Company Number: US200802006440

PATIENT
  Age: 66 Year
  Sex: Female
  Weight: 127 kg

DRUGS (6)
  1. BYETTA [Suspect]
     Indication: INSULIN-REQUIRING TYPE 2 DIABETES MELLITUS
     Dosage: UNKNOWN SUBCUTANEOUS; 5 UG,  SUBUCTANEOUS; 10 UG, 2/D, SUBCUTANEOUS
     Route: 058
     Dates: start: 20071201, end: 20080101
  2. BYETTA [Suspect]
     Indication: INSULIN-REQUIRING TYPE 2 DIABETES MELLITUS
     Dosage: UNKNOWN SUBCUTANEOUS; 5 UG,  SUBUCTANEOUS; 10 UG, 2/D, SUBCUTANEOUS
     Route: 058
  3. BYETTA [Suspect]
     Indication: INSULIN-REQUIRING TYPE 2 DIABETES MELLITUS
     Dosage: UNKNOWN SUBCUTANEOUS; 5 UG,  SUBUCTANEOUS; 10 UG, 2/D, SUBCUTANEOUS
     Route: 058
     Dates: start: 20080101
  4. METFORMIN HCL [Concomitant]
  5. ACTOS /USA/(PIOGLITAZONE HYDROCHLORIDE) [Concomitant]
  6. LANTUS [Concomitant]

REACTIONS (1)
  - ERYTHEMA [None]
